FAERS Safety Report 6082811-2 (Version None)
Quarter: 2009Q1

REPORT INFORMATION
  Report Type: 
  Country: None (occurrence: None)
  Receive Date: 20090218
  Receipt Date: 20090206
  Transmission Date: 20090719
  Serious: Yes (Life-Threatening, Other)
  Sender: FDA-Public Use
  Company Number: US-JNJCH-2009003726

PATIENT
  Age: 88 Year
  Sex: Male

DRUGS (2)
  1. BENADRYL [Suspect]
     Indication: NASOPHARYNGITIS
     Dosage: TEXT:UNSPECIFIED
     Route: 048
  2. CLARITIN [Suspect]
     Indication: RHINORRHOEA
     Dosage: TEXT:UNKNOWN
     Route: 065

REACTIONS (2)
  - DYSPNOEA [None]
  - GENERAL PHYSICAL HEALTH DETERIORATION [None]
